FAERS Safety Report 8168125-5 (Version None)
Quarter: 2012Q1

REPORT INFORMATION
  Report Type: 
  Country: None (occurrence: None)
  Receive Date: 20120222
  Receipt Date: 20120206
  Transmission Date: 20120608
  Serious: Yes (Other)
  Sender: FDA-Public Use
  Company Number: PI-06693

PATIENT
  Age: 50 Year
  Sex: Female

DRUGS (1)
  1. CHLORAPREP [Suspect]
     Indication: SURGERY
     Dosage: 26 ML, ONCE, TOPICAL
     Route: 061
     Dates: start: 20110301

REACTIONS (1)
  - BURNS SECOND DEGREE [None]
